FAERS Safety Report 12342414 (Version 4)
Quarter: 2016Q3

REPORT INFORMATION
  Report Type: Spontaneous
  Country: JP (occurrence: JP)
  Receive Date: 20160506
  Receipt Date: 20160701
  Transmission Date: 20161109
  Serious: Yes (Hospitalization, Other)
  Sender: FDA-Public Use
  Company Number: JP-GILEAD-2016-0207795AA

PATIENT
  Age: 57 Year
  Sex: Female

DRUGS (6)
  1. DEPAKENE [Suspect]
     Active Substance: VALPROIC ACID
     Indication: CONVERSION DISORDER
     Dosage: UNK
     Route: 065
     Dates: start: 20160325, end: 20160331
  2. SOVALDI [Suspect]
     Active Substance: SOFOSBUVIR
     Indication: CHRONIC HEPATITIS
     Dosage: 400 MG, UNK
     Route: 048
     Dates: start: 20160311, end: 20160314
  3. RENIVACE [Concomitant]
     Active Substance: ENALAPRIL
  4. PAXIL [Concomitant]
     Active Substance: PAROXETINE HYDROCHLORIDE
  5. COPEGUS [Concomitant]
     Active Substance: RIBAVIRIN
  6. SELOKEN                            /00376902/ [Concomitant]
     Active Substance: METOPROLOL TARTRATE

REACTIONS (2)
  - Conversion disorder [Recovering/Resolving]
  - Drug-induced liver injury [Recovered/Resolved]

NARRATIVE: CASE EVENT DATE: 201603
